FAERS Safety Report 4296722-6 (Version None)
Quarter: 2004Q1

REPORT INFORMATION
  Report Type: 
  Country: None (occurrence: None)
  Receive Date: 20040217
  Receipt Date: 20040107
  Transmission Date: 20041129
  Serious: Yes (Death, Hospitalization)
  Sender: FDA-Public Use
  Company Number: WAES 0401USA00613

PATIENT
  Age: 80 Year
  Sex: Male

DRUGS (1)
  1. VIOXX [Suspect]
     Route: 048

REACTIONS (5)
  - DEATH [None]
  - DIZZINESS [None]
  - FALL [None]
  - HAEMORRHAGE [None]
  - SUBDURAL HAEMATOMA [None]
